FAERS Safety Report 4371894-3 (Version None)
Quarter: 2004Q2

REPORT INFORMATION
  Report Type: 
  Country: None (occurrence: None)
  Receive Date: 20040602
  Receipt Date: 20040517
  Transmission Date: 20050107
  Serious: Yes (Other)
  Sender: FDA-Public Use
  Company Number: B0333274A

PATIENT
  Sex: Male

DRUGS (1)
  1. COMMIT [Suspect]
     Indication: EX-SMOKER
     Dosage: 2 MG/ TRANSBUCCAL
     Route: 002

REACTIONS (1)
  - LOSS OF CONSCIOUSNESS [None]
